FAERS Safety Report 8107024-1 (Version None)
Quarter: 2012Q1

REPORT INFORMATION
  Report Type: 
  Country: None (occurrence: None)
  Receive Date: 20120202
  Receipt Date: 20120202
  Transmission Date: 20120608
  Serious: Yes (Hospitalization)
  Sender: FDA-Public Use
  Company Number: None

PATIENT
  Age: 35 Year
  Sex: Female
  Weight: 86.182 kg

DRUGS (2)
  1. LUPRON [Suspect]
     Indication: UTERINE LEIOMYOMA
     Dosage: 7.5 MG
     Route: 030
     Dates: start: 20101001, end: 20110701
  2. DEPO-PROVERA [Concomitant]

REACTIONS (11)
  - PARAESTHESIA [None]
  - PRODUCT QUALITY ISSUE [None]
  - ARTHRALGIA [None]
  - HYPOAESTHESIA [None]
  - CENTRAL NERVOUS SYSTEM LESION [None]
  - SYNCOPE [None]
  - AMNESIA [None]
  - BONE PAIN [None]
  - DIZZINESS [None]
  - INSOMNIA [None]
  - DIPLOPIA [None]
